FAERS Safety Report 8415330-6 (Version None)
Quarter: 2012Q2

REPORT INFORMATION
  Report Type: 
  Country: None (occurrence: None)
  Receive Date: 20120606
  Receipt Date: 20120528
  Transmission Date: 20120825
  Serious: Yes (Hospitalization)
  Sender: FDA-Public Use
  Company Number: PHHY2012BR046846

PATIENT
  Age: 57 Year
  Sex: Male
  Weight: 113 kg

DRUGS (10)
  1. LIPLESS [Concomitant]
  2. MIOFLEX [Concomitant]
  3. METFORMIN HCL [Concomitant]
  4. ANTIEPILEPTICS [Concomitant]
  5. DORFLEX [Concomitant]
  6. ALLOPURINOL [Concomitant]
  7. GLEEVEC [Suspect]
     Dosage: 800 MG, DAILY
     Route: 048
  8. TEGRETOL [Suspect]
  9. TORLOS H [Concomitant]
  10. GLEEVEC [Suspect]
     Dosage: 200 MG, DAILY
     Route: 048
     Dates: start: 20030101

REACTIONS (8)
  - DRUG INEFFECTIVE [None]
  - HYPERGLYCAEMIA [None]
  - HYDROCELE [None]
  - MUSCLE SPASMS [None]
  - SUTURE RUPTURE [None]
  - BLOOD URIC ACID ABNORMAL [None]
  - BLOOD TRIGLYCERIDES INCREASED [None]
  - MYALGIA [None]
